FAERS Safety Report 20816952 (Version 3)
Quarter: 2022Q2

REPORT INFORMATION
  Report Type: Spontaneous
  Country: US (occurrence: US)
  Receive Date: 20220512
  Receipt Date: 20220527
  Transmission Date: 20220721
  Serious: Yes (Other)
  Sender: FDA-Public Use
  Company Number: US-AMGEN-USASP2022078754

PATIENT
  Age: 41 Year
  Sex: Female

DRUGS (3)
  1. AIMOVIG [Suspect]
     Active Substance: ERENUMAB-AOOE
     Indication: Migraine prophylaxis
     Dosage: 70 MILLIGRAM
     Route: 065
  2. AIMOVIG [Suspect]
     Active Substance: ERENUMAB-AOOE
     Dosage: 70 MILLIGRAM
     Route: 065
  3. AIMOVIG [Suspect]
     Active Substance: ERENUMAB-AOOE
     Dosage: 140 MILLIGRAM
     Route: 065

REACTIONS (9)
  - Mycotoxicosis [Unknown]
  - Migraine [Not Recovered/Not Resolved]
  - Product storage error [Unknown]
  - Product supply issue [Unknown]
  - Memory impairment [Unknown]
  - Road traffic accident [Unknown]
  - COVID-19 [Unknown]
  - Device difficult to use [Unknown]
  - Product label issue [Unknown]

NARRATIVE: CASE EVENT DATE: 20210101
